FAERS Safety Report 9099294 (Version 3)
Quarter: 2013Q2

REPORT INFORMATION
  Report Type: Spontaneous
  Country: US (occurrence: US)
  Receive Date: 20130214
  Receipt Date: 20130514
  Transmission Date: 20140414
  Serious: Yes (Other)
  Sender: FDA-Public Use
  Company Number: US-PFIZER INC-2013058658

PATIENT
  Age: 16 Year
  Sex: Female
  Weight: 90.7 kg

DRUGS (3)
  1. ADVIL [Suspect]
     Dosage: 200 MG, UNK
     Route: 048
  2. ADVIL [Suspect]
     Dosage: 40 TABLETS OF IBUPROFEN 200 MG TOGETHER
     Route: 048
     Dates: start: 20130206
  3. GEODON [Concomitant]
     Dosage: 60 MG, 1X/DAY

REACTIONS (3)
  - Overdose [Unknown]
  - Suicide attempt [Unknown]
  - Vomiting [Recovered/Resolved]
